FAERS Safety Report 10039059 (Version 2)
Quarter: 2014Q2

REPORT INFORMATION
  Report Type: Report from Study
  Country: US (occurrence: US)
  Receive Date: 20140326
  Receipt Date: 20140404
  Transmission Date: 20141212
  Serious: Yes (Other)
  Sender: FDA-Public Use
  Company Number: US-BAYER-2014-042815

PATIENT
  Age: 60 Year
  Sex: Female

DRUGS (1)
  1. BETASERON [Suspect]
     Indication: CLINICALLY ISOLATED SYNDROME
     Dosage: 2 MIU, QOD
     Route: 058
     Dates: start: 20140212, end: 20140324

REACTIONS (7)
  - Joint dislocation [Not Recovered/Not Resolved]
  - Muscular weakness [Recovering/Resolving]
  - Back pain [Recovered/Resolved]
  - Muscle spasms [Recovered/Resolved]
  - Pain in extremity [Recovering/Resolving]
  - Musculoskeletal stiffness [Recovering/Resolving]
  - Arthralgia [Recovering/Resolving]
